FAERS Safety Report 23040350 (Version 1)
Quarter: 2023Q4

REPORT INFORMATION
  Report Type: Spontaneous
  Country: CA (occurrence: CA)
  Receive Date: 20231006
  Receipt Date: 20231006
  Transmission Date: 20240109
  Serious: Yes (Other)
  Sender: FDA-Public Use
  Company Number: CA-PFIZER INC-202300312907

PATIENT
  Sex: Female

DRUGS (4)
  1. RIFABUTIN [Suspect]
     Active Substance: RIFABUTIN
     Indication: Mycobacterium avium complex infection
     Dosage: UNK
     Route: 065
  2. AMIKACIN [Suspect]
     Active Substance: AMIKACIN
     Indication: Mycobacterium avium complex infection
     Route: 065
  3. ETHAMBUTOL [Suspect]
     Active Substance: ETHAMBUTOL HYDROCHLORIDE
     Indication: Mycobacterium avium complex infection
     Route: 065
  4. AZITHROMYCIN ANHYDROUS [Suspect]
     Active Substance: AZITHROMYCIN ANHYDROUS
     Indication: Mycobacterium avium complex infection
     Route: 065

REACTIONS (3)
  - Drug ineffective [Unknown]
  - Drug intolerance [Unknown]
  - Mycobacterium avium complex infection [Unknown]
